FAERS Safety Report 6130179-5 (Version None)
Quarter: 2009Q1

REPORT INFORMATION
  Report Type: 
  Country: None (occurrence: None)
  Receive Date: 20090324
  Receipt Date: 20090319
  Transmission Date: 20090719
  Serious: Yes (Other)
  Sender: FDA-Public Use
  Company Number: JP-BRISTOL-MYERS SQUIBB COMPANY-13998646

PATIENT
  Age: 74 Year
  Sex: Male

DRUGS (2)
  1. TAXOL [Suspect]
     Indication: LUNG ADENOCARCINOMA
     Dosage: 110 MG ON DAY 1, 8 AND 15
     Route: 041
  2. PARAPLATIN [Suspect]
     Indication: LUNG ADENOCARCINOMA
     Dosage: AUC 5; ON DAY 1
     Route: 041

REACTIONS (2)
  - RECTAL PERFORATION [None]
  - SEPTIC SHOCK [None]
